FAERS Safety Report 7385509-3 (Version None)
Quarter: 2011Q1

REPORT INFORMATION
  Report Type: 
  Country: None (occurrence: None)
  Receive Date: 20110331
  Receipt Date: 20110328
  Transmission Date: 20110831
  Serious: Yes (Other)
  Sender: FDA-Public Use
  Company Number: US-ASTRAZENECA-2011SE17477

PATIENT
  Age: 21 Year
  Sex: Female
  Weight: 79.4 kg

DRUGS (9)
  1. GLIPIZIDE [Concomitant]
     Route: 048
     Dates: start: 20100510
  2. NADOLOL [Concomitant]
     Route: 048
     Dates: start: 20100510
  3. ACIPHEX [Concomitant]
     Route: 048
     Dates: start: 20100510
  4. KETOCONAZOLE [Concomitant]
     Route: 048
     Dates: start: 20100510
  5. PROMETHAZINE HCL [Concomitant]
     Route: 048
     Dates: start: 20100510
  6. ACTOS [Concomitant]
     Route: 048
     Dates: start: 20100510
  7. SEROQUEL [Suspect]
     Route: 048
  8. IMITREX [Concomitant]
     Indication: HEADACHE
     Dates: start: 20050101
  9. AMITRIPTYLINE HCL [Concomitant]
     Route: 048
     Dates: start: 20100510

REACTIONS (10)
  - MIGRAINE [None]
  - ASTHMA [None]
  - STRESS [None]
  - HAEMORRHOIDS [None]
  - DIARRHOEA [None]
  - RIFT VALLEY FEVER [None]
  - IMPAIRED GASTRIC EMPTYING [None]
  - DIABETIC NEUROPATHY [None]
  - WEIGHT INCREASED [None]
  - TYPE 2 DIABETES MELLITUS [None]
